FAERS Safety Report 14326630 (Version 1)
Quarter: 2017Q4

REPORT INFORMATION
  Report Type: Spontaneous
  Country: US (occurrence: US)
  Receive Date: 20171227
  Receipt Date: 20171227
  Transmission Date: 20180321
  Serious: No
  Sender: FDA-Public Use
  Company Number: US-TEVA-2017-US-839252

PATIENT
  Age: 68 Year
  Sex: Female
  Weight: 77.18 kg

DRUGS (7)
  1. BISOPROLOL [Concomitant]
     Active Substance: BISOPROLOL
     Dosage: THE LOWEST STRENGTH, STARTED ABOUT 6 MONTHS AGO, ONGOING
     Route: 065
  2. HYDROMORPHONE [Concomitant]
     Active Substance: HYDROMORPHONE
     Dosage: STARTED ABOUT 3 YEARS AGO,ONGOING AS NEEDED
  3. LUMIGAN [Concomitant]
     Active Substance: BIMATOPROST
     Dosage: STARTED ABOUT 2 YEARS AGO, STOPPED THE SUMMER 2017
     Route: 065
  4. PROPRANOLOL [Concomitant]
     Active Substance: PROPRANOLOL HYDROCHLORIDE
     Indication: EXTRASYSTOLES
  5. DIAZEPAM. [Suspect]
     Active Substance: DIAZEPAM
     Indication: INSOMNIA
     Dosage: TAKES HALF OF A TABLET FIRST AND TAKE THE SECOND HALF LATER
     Route: 048
  6. COMBIGAN [Concomitant]
     Active Substance: BRIMONIDINE TARTRATE\TIMOLOL MALEATE
     Dosage: STARTED ABOUT 9 YEARS AGO, STOPPED THE SUMMER 2017
     Route: 065
  7. PROMETRIUM [Concomitant]
     Active Substance: PROGESTERONE
     Dosage: ONGOING
     Dates: start: 2003

REACTIONS (2)
  - Insomnia [Recovered/Resolved]
  - Product use in unapproved indication [Unknown]
